FAERS Safety Report 21221146 (Version 18)
Quarter: 2025Q3

REPORT INFORMATION
  Report Type: Report from Study
  Country: US (occurrence: US)
  Receive Date: 20220817
  Receipt Date: 20250926
  Transmission Date: 20251020
  Serious: Yes (Other)
  Sender: TAKEDA
  Company Number: US-TAKEDA-2022TUS031549

PATIENT
  Sex: Female
  Weight: 97 kg

DRUGS (43)
  1. HUMAN IMMUNOGLOBULIN G [Suspect]
     Active Substance: HUMAN IMMUNOGLOBULIN G
     Indication: Myotonia
     Dosage: 52 GRAM, Q4WEEKS
  2. HUMAN IMMUNOGLOBULIN G [Suspect]
     Active Substance: HUMAN IMMUNOGLOBULIN G
     Dosage: 600 MG/KG, Q4WEEKS
  3. EPINEPHRINE [Concomitant]
     Active Substance: EPINEPHRINE
  4. ACETAMINOPHEN [Concomitant]
     Active Substance: ACETAMINOPHEN
  5. MECLIZINE HYDROCHLORIDE [Concomitant]
     Active Substance: MECLIZINE HYDROCHLORIDE
  6. PREDNISONE [Concomitant]
     Active Substance: PREDNISONE
  7. BACLOFEN [Concomitant]
     Active Substance: BACLOFEN
  8. SODIUM CHLORIDE [Concomitant]
     Active Substance: SODIUM CHLORIDE
  9. AZELASTINE HYDROCHLORIDE [Concomitant]
     Active Substance: AZELASTINE HYDROCHLORIDE
  10. BUPROPION [Concomitant]
     Active Substance: BUPROPION
  11. PANTOPRAZOLE SODIUM [Concomitant]
     Active Substance: PANTOPRAZOLE SODIUM
  12. BUSPIRONE HCL [Concomitant]
     Active Substance: BUSPIRONE HYDROCHLORIDE
  13. SUCRALFATE [Concomitant]
     Active Substance: SUCRALFATE
  14. LIDOCAINE [Concomitant]
     Active Substance: LIDOCAINE
  15. FLUTICASONE PROPIONATE [Concomitant]
     Active Substance: FLUTICASONE PROPIONATE
  16. NAPROXEN [Concomitant]
     Active Substance: NAPROXEN
  17. TEMAZEPAM [Concomitant]
     Active Substance: TEMAZEPAM
  18. DIPHENHYDRAMINE HYDROCHLORIDE [Concomitant]
     Active Substance: DIPHENHYDRAMINE HYDROCHLORIDE
  19. BUTALBITAL AND ACETAMINOPHEN [Concomitant]
     Active Substance: ACETAMINOPHEN\BUTALBITAL
  20. SODIUM CHLORIDE [Concomitant]
     Active Substance: SODIUM CHLORIDE
  21. ALPRAZOLAM [Concomitant]
     Active Substance: ALPRAZOLAM
  22. ZALEPLON [Concomitant]
     Active Substance: ZALEPLON
  23. BUPROPION HYDROCHLORIDE [Concomitant]
     Active Substance: BUPROPION HYDROCHLORIDE
  24. ADDERALL [Concomitant]
     Active Substance: AMPHETAMINE ASPARTATE\AMPHETAMINE SULFATE\DEXTROAMPHETAMINE SACCHARATE\DEXTROAMPHETAMINE SULFATE
  25. DIPHENHYDRAMINE [Concomitant]
     Active Substance: DIPHENHYDRAMINE
  26. SERTRALINE HYDROCHLORIDE [Concomitant]
     Active Substance: SERTRALINE HYDROCHLORIDE
  27. TIZANIDINE HYDROCHLORIDE [Concomitant]
     Active Substance: TIZANIDINE HYDROCHLORIDE
  28. BIOTIN [Concomitant]
     Active Substance: BIOTIN
  29. FAMOTIDINE [Concomitant]
     Active Substance: FAMOTIDINE
  30. CARVEDILOL [Concomitant]
     Active Substance: CARVEDILOL
  31. LORATADINE [Concomitant]
     Active Substance: LORATADINE
  32. HYDROXYZINE HYDROCHLORIDE [Concomitant]
     Active Substance: HYDROXYZINE HYDROCHLORIDE
  33. RAMELTEON [Concomitant]
     Active Substance: RAMELTEON
  34. MELOXICAM [Concomitant]
     Active Substance: MELOXICAM
  35. ALKA SELTZER PLUS COLD [Concomitant]
     Active Substance: ASPIRIN\CHLORPHENIRAMINE MALEATE\PHENYLEPHRINE BITARTRATE
  36. BUTALBITAL [Concomitant]
     Active Substance: BUTALBITAL
  37. ACETAMINOPHEN AND CAFFEINE [Concomitant]
     Active Substance: ACETAMINOPHEN\CAFFEINE
  38. BUTALBITAL, ACETAMINOPHEN, AND CAFFEINE [Concomitant]
     Active Substance: ACETAMINOPHEN\BUTALBITAL\CAFFEINE
  39. ESZOPICLONE [Concomitant]
     Active Substance: ESZOPICLONE
  40. VENLAFAXINE HCL [Concomitant]
     Active Substance: VENLAFAXINE HYDROCHLORIDE
  41. ARIPIPRAZOLE [Concomitant]
     Active Substance: ARIPIPRAZOLE
  42. VITAMIN D3 [Concomitant]
     Active Substance: CHOLECALCIFEROL
  43. FOLBIC [Concomitant]
     Active Substance: CYANOCOBALAMIN\FOLIC ACID\PYRIDOXINE

REACTIONS (29)
  - Cellulitis [Unknown]
  - Idiopathic intracranial hypertension [Unknown]
  - Fall [Unknown]
  - Nasopharyngitis [Unknown]
  - Urinary tract infection [Unknown]
  - Infusion site irritation [Unknown]
  - Spleen disorder [Unknown]
  - Renal mass [Unknown]
  - Splenomegaly [Unknown]
  - Respiratory tract congestion [Unknown]
  - Visual impairment [Unknown]
  - Infusion site haemorrhage [Unknown]
  - Heart rate increased [Unknown]
  - Vertigo [Unknown]
  - Infusion site discomfort [Unknown]
  - Muscular weakness [Unknown]
  - Pain [Recovered/Resolved]
  - Anxiety [Unknown]
  - Flushing [Unknown]
  - Dyspnoea [Unknown]
  - Chest discomfort [Unknown]
  - Chills [Recovered/Resolved]
  - Infusion site pain [Unknown]
  - Fatigue [Unknown]
  - Headache [Unknown]
  - Nausea [Unknown]
  - Abdominal distension [Unknown]
  - Infusion site oedema [Unknown]
  - Infusion site extravasation [Unknown]
